FAERS Safety Report 6221483-0 (Version None)
Quarter: 2009Q2

REPORT INFORMATION
  Report Type: 
  Country: None (occurrence: None)
  Receive Date: 20090610
  Receipt Date: 20081105
  Transmission Date: 20091009
  Serious: Yes (Disabling, Other)
  Sender: FDA-Public Use
  Company Number: US-JNJFOC-20081102270

PATIENT
  Sex: Male
  Weight: 83.46 kg

DRUGS (17)
  1. DOXIL [Suspect]
     Indication: MULTIPLE MYELOMA
     Dosage: 2ND CYCLE
     Route: 042
  2. VELCADE [Suspect]
     Indication: MULTIPLE MYELOMA
     Dosage: 2ND CYCLE
     Route: 042
  3. DECADRON [Concomitant]
     Dosage: CYCLE 2
     Route: 065
  4. DECADRON [Concomitant]
     Indication: MULTIPLE MYELOMA
     Dosage: CYCLE 1. ON DAYS 1,2,3,4, 12,13,14,15
     Route: 065
  5. CYTOXAN [Concomitant]
     Indication: MULTIPLE MYELOMA
     Route: 048
  6. REVLIMID [Concomitant]
     Dosage: CYCLE 2
     Route: 065
  7. REVLIMID [Concomitant]
     Indication: MULTIPLE MYELOMA
     Dosage: ON DAYS 1 TO 21
     Route: 065
  8. ASPIRIN [Concomitant]
     Indication: THROMBOSIS PROPHYLAXIS
     Route: 065
  9. TRAMADOL HCL [Concomitant]
     Indication: PAIN
     Route: 065
  10. COMPAZINE [Concomitant]
     Indication: PROPHYLAXIS OF NAUSEA AND VOMITING
     Route: 065
  11. ZOMETA [Concomitant]
     Route: 065
  12. OMEPRAZOLE [Concomitant]
     Indication: GASTROOESOPHAGEAL REFLUX DISEASE
     Route: 065
  13. SIMVASTATIN [Concomitant]
     Indication: CORONARY ARTERY DISEASE
     Route: 065
  14. LISINOPRIL [Concomitant]
     Indication: HYPERTENSION
     Route: 065
  15. CLONAZEPAM [Concomitant]
     Route: 065
  16. AMBIEN [Concomitant]
     Indication: INSOMNIA
     Route: 065
  17. GABAPENTIN [Concomitant]
     Indication: NEURALGIA
     Route: 065

REACTIONS (7)
  - ASTHENIA [None]
  - FATIGUE [None]
  - HYPONATRAEMIA [None]
  - ORTHOSTATIC HYPOTENSION [None]
  - PERIPHERAL SENSORY NEUROPATHY [None]
  - THROMBOCYTOPENIA [None]
  - VISION BLURRED [None]
